FAERS Safety Report 7634098 (Version 5)
Quarter: 2012Q4

REPORT INFORMATION
  Report Type: 
  Country: US (occurrence: US)
  Receive Date: 20101019
  Receipt Date: 20121018
  Transmission Date: 20130627
  Serious: Yes (Death)
  Sender: FDA-Public Use
  Company Number: US-MYLANLABS-2010S1018608

PATIENT
  Age: 31 Year
  Sex: Male
  Weight: 117.48 kg

DRUGS (12)
  1. FENTANYL TRANSDERMAL SYSTEM [Suspect]
     Indication: PAIN
     Route: 062
  2. ETHANOL [Suspect]
  3. ALPRAZOLAM [Suspect]
  4. HYDROCODONE + ACETAMINOPHEN [Concomitant]
  5. CARISOPRODOL [Concomitant]
  6. NYSTATIN [Concomitant]
     Route: 048
  7. ROBAXIN [Concomitant]
  8. LYRICA [Concomitant]
  9. TIZANIDINE [Concomitant]
  10. OMEPRAZOLE [Concomitant]
  11. PROPRANOLOL [Concomitant]
  12. AMLODIPINE [Concomitant]

REACTIONS (3)
  - Toxicity to various agents [Fatal]
  - Overdose [Fatal]
  - Drug prescribing error [Fatal]
